FAERS Safety Report 24640534 (Version 1)
Quarter: 2024Q4

REPORT INFORMATION
  Report Type: Report from Study
  Country: GB (occurrence: GB)
  Receive Date: 20241120
  Receipt Date: 20241120
  Transmission Date: 20250114
  Serious: Yes (Death, Other)
  Sender: SANDOZ
  Company Number: GB-002147023-NVSC2022GB256429

PATIENT
  Sex: Male

DRUGS (2)
  1. OMNITROPE [Suspect]
     Active Substance: SOMATROPIN
     Indication: Growth hormone deficiency
     Dosage: 0.7 MG, QD
     Route: 058
     Dates: start: 20221110
  2. OMNITROPE [Suspect]
     Active Substance: SOMATROPIN
     Indication: Hypopituitarism

REACTIONS (4)
  - Death [Fatal]
  - Injection site haemorrhage [Unknown]
  - Product prescribing error [Unknown]
  - Product dose omission issue [Unknown]
